FAERS Safety Report 13317307 (Version 1)
Quarter: 2017Q1

REPORT INFORMATION
  Report Type: Spontaneous
  Country: PL (occurrence: PL)
  Receive Date: 20170310
  Receipt Date: 20170310
  Transmission Date: 20170428
  Serious: Yes (Hospitalization)
  Sender: FDA-Public Use
  Company Number: PL-ACCORD-048891

PATIENT
  Age: 39 Year
  Sex: Female

DRUGS (11)
  1. LEVETIRACETAM. [Suspect]
     Active Substance: LEVETIRACETAM
     Indication: EPILEPSY
  2. DEXAMETHASONE. [Concomitant]
     Active Substance: DEXAMETHASONE
     Indication: OEDEMA
  3. VINPOCETINE [Concomitant]
     Active Substance: VINPOCETINE
  4. CEFTRIAXONE. [Concomitant]
     Active Substance: CEFTRIAXONE
     Indication: ANTIBIOTIC THERAPY
  5. ACENOCOUMAROL [Interacting]
     Active Substance: ACENOCOUMAROL
     Indication: ANTICOAGULANT THERAPY
     Route: 048
  6. VALPROIC ACID. [Interacting]
     Active Substance: VALPROIC ACID
     Indication: EPILEPSY
  7. ACICLOVIR [Concomitant]
     Active Substance: ACYCLOVIR
     Indication: ANTIVIRAL TREATMENT
  8. METRONIDAZOLE. [Concomitant]
     Active Substance: METRONIDAZOLE
     Indication: ANTIBIOTIC THERAPY
  9. AMIKACIN [Concomitant]
     Active Substance: AMIKACIN
     Indication: ANTIBIOTIC THERAPY
  10. MANNITOL. [Concomitant]
     Active Substance: MANNITOL
     Indication: OEDEMA
  11. NADROPARIN [Interacting]
     Active Substance: NADROPARIN
     Indication: ANTICOAGULANT THERAPY
     Dosage: 2 X 0.6 ML

REACTIONS (1)
  - Drug interaction [Unknown]
